FAERS Safety Report 25102972 (Version 1)
Quarter: 2025Q1

REPORT INFORMATION
  Report Type: Spontaneous
  Country: DE (occurrence: DE)
  Receive Date: 20250321
  Receipt Date: 20250321
  Transmission Date: 20250408
  Serious: Yes (Other)
  Sender: GALDERMA
  Company Number: DE-GALDERMA-DE2025003676

PATIENT

DRUGS (1)
  1. DOXYCYCLINE [Suspect]
     Active Substance: DOXYCYCLINE
     Indication: Rosacea
     Route: 048

REACTIONS (2)
  - Diverticulitis [Recovering/Resolving]
  - Gastrooesophageal reflux disease [Recovering/Resolving]
